FAERS Safety Report 21217379 (Version 1)
Quarter: 2022Q3

REPORT INFORMATION
  Report Type: Spontaneous
  Country: US (occurrence: US)
  Receive Date: 20220816
  Receipt Date: 20220816
  Transmission Date: 20221026
  Serious: Yes (Hospitalization)
  Sender: FDA-Public Use
  Company Number: US-LUPIN PHARMACEUTICALS INC.-2022-10305

PATIENT
  Age: 49 Year
  Sex: Male

DRUGS (8)
  1. ESCITALOPRAM [Suspect]
     Active Substance: ESCITALOPRAM OXALATE
     Indication: Depression
     Dosage: 20 MG
     Route: 065
  2. ESCITALOPRAM [Suspect]
     Active Substance: ESCITALOPRAM OXALATE
     Indication: Psychotic disorder
  3. BUPROPION [Suspect]
     Active Substance: BUPROPION
     Indication: Depression
     Dosage: 300 MG (TITRATED TO 300 MG)
     Route: 065
  4. BUPROPION [Suspect]
     Active Substance: BUPROPION
     Indication: Psychotic disorder
     Dosage: 300 MG, QD
     Route: 065
  5. CITALOPRAM [Suspect]
     Active Substance: CITALOPRAM HYDROBROMIDE
     Indication: Depression
     Dosage: 20 MG
     Route: 065
  6. CITALOPRAM [Suspect]
     Active Substance: CITALOPRAM HYDROBROMIDE
     Indication: Psychotic disorder
  7. ARIPIPRAZOLE [Suspect]
     Active Substance: ARIPIPRAZOLE
     Indication: Depression
     Dosage: 5 MG
     Route: 065
  8. ARIPIPRAZOLE [Suspect]
     Active Substance: ARIPIPRAZOLE
     Indication: Psychotic disorder
     Dosage: 5 MG, QD (AT NIGHT)
     Route: 065

REACTIONS (1)
  - Therapy non-responder [Unknown]
